FAERS Safety Report 13135548 (Version 10)
Quarter: 2018Q4

REPORT INFORMATION
  Report Type: Report from Study
  Country: None (occurrence: US)
  Receive Date: 20170120
  Receipt Date: 20181027
  Transmission Date: 20190204
  Serious: Yes (Other)
  Sender: FDA-Public Use
  Company Number: US-ABBVIE-17K-163-1840010-00

PATIENT
  Sex: Male

DRUGS (4)
  1. HUMIRA [Suspect]
     Active Substance: ADALIMUMAB
     Route: 058
     Dates: start: 201802
  2. HUMIRA [Suspect]
     Active Substance: ADALIMUMAB
     Indication: PSORIATIC ARTHROPATHY
     Route: 058
     Dates: end: 20170103
  3. HUMIRA [Suspect]
     Active Substance: ADALIMUMAB
     Route: 058
     Dates: start: 2017, end: 2017
  4. HUMIRA [Suspect]
     Active Substance: ADALIMUMAB
     Route: 058
     Dates: start: 2017, end: 201801

REACTIONS (19)
  - Grip strength decreased [Unknown]
  - Nasopharyngitis [Unknown]
  - Injection site pain [Unknown]
  - Cataract [Recovered/Resolved]
  - Psoriatic arthropathy [Unknown]
  - Hypertension [Unknown]
  - Anaesthetic complication neurological [Recovered/Resolved]
  - Nasopharyngitis [Recovered/Resolved]
  - Sensitivity to weather change [Unknown]
  - Herpes zoster [Unknown]
  - Hernia [Recovered/Resolved]
  - Injection site haemorrhage [Unknown]
  - Blood cholesterol increased [Unknown]
  - Psoriasis [Recovered/Resolved]
  - Bone erosion [Unknown]
  - Musculoskeletal discomfort [Unknown]
  - Sinusitis [Unknown]
  - Fungal skin infection [Unknown]
  - Psoriasis [Unknown]

NARRATIVE: CASE EVENT DATE: 2017
